FAERS Safety Report 25020264 (Version 1)
Quarter: 2025Q1

REPORT INFORMATION
  Report Type: Spontaneous
  Country: US (occurrence: US)
  Receive Date: 20250227
  Receipt Date: 20250227
  Transmission Date: 20250409
  Serious: Yes (Death, Congenital Anomaly)
  Sender: ELI LILLY AND COMPANY
  Company Number: US-ELI_LILLY_AND_COMPANY-US202502018802

PATIENT

DRUGS (2)
  1. MOUNJARO [Suspect]
     Active Substance: TIRZEPATIDE
     Indication: Product used for unknown indication
     Route: 064
  2. MOUNJARO [Suspect]
     Active Substance: TIRZEPATIDE
     Indication: Product used for unknown indication
     Route: 064

REACTIONS (8)
  - Congenital musculoskeletal disorder [Fatal]
  - Hydronephrosis [Fatal]
  - Congenital musculoskeletal disorder of spine [Fatal]
  - Talipes [Fatal]
  - Foetal cardiac disorder [Fatal]
  - Kyphosis [Fatal]
  - Thoracic insufficiency syndrome [Fatal]
  - Foetal exposure during pregnancy [Recovered/Resolved]
